FAERS Safety Report 4290720-4 (Version None)
Quarter: 2004Q1

REPORT INFORMATION
  Report Type: 
  Country: None (occurrence: None)
  Receive Date: 20040206
  Receipt Date: 20040206
  Transmission Date: 20041129
  Serious: No
  Sender: FDA-Public Use
  Company Number: None

PATIENT
  Age: 39 Year
  Sex: Female

DRUGS (4)
  1. BACTRIM DS [Suspect]
     Indication: PNEUMOCYSTIS CARINII PNEUMONIA
     Dosage: ORAL
     Route: 048
     Dates: start: 20031118, end: 20031121
  2. COMBIVIR [Concomitant]
  3. NELFINAVIR [Concomitant]
  4. RESPIRIDONE [Concomitant]

REACTIONS (1)
  - BLOOD CREATININE INCREASED [None]
